FAERS Safety Report 9102405 (Version 8)
Quarter: 2014Q2

REPORT INFORMATION
  Report Type: Report from Study
  Country: BR (occurrence: BR)
  Receive Date: 20130218
  Receipt Date: 20140423
  Transmission Date: 20141212
  Serious: Yes (Hospitalization)
  Sender: FDA-Public Use
  Company Number: BR-ROCHE-756087

PATIENT
  Age: 44 Year
  Sex: Female
  Weight: 75 kg

DRUGS (26)
  1. MABTHERA [Suspect]
     Indication: RHEUMATOID ARTHRITIS
     Dosage: INDICATION: LUPUS, FORM:INFUSION
     Route: 065
     Dates: start: 20091208, end: 20091222
  2. MABTHERA [Suspect]
     Route: 065
     Dates: start: 20100623, end: 20100707
  3. MABTHERA [Suspect]
     Route: 065
     Dates: start: 20110110, end: 20110124
  4. ACTEMRA [Suspect]
     Indication: RHEUMATOID ARTHRITIS
     Dosage: MOST RECENT DOSE RECEIVED ON 11/MAR/2013, 31/JAN/2014
     Route: 042
     Dates: start: 20130107, end: 20140305
  5. ATENOLOL [Concomitant]
     Route: 065
  6. ATENOLOL [Concomitant]
     Route: 065
  7. FOLIC ACID [Concomitant]
  8. OMEPRAZOLE [Concomitant]
     Indication: GASTRIC DISORDER
     Route: 065
  9. MODURETIC [Concomitant]
     Route: 065
  10. NEXIUM [Concomitant]
     Route: 065
  11. INDAPEN [Concomitant]
     Route: 065
  12. SPIRONOLACTONE [Concomitant]
     Route: 065
  13. HYDROCORTISONE [Concomitant]
     Indication: PREMEDICATION
  14. NARAMIG [Concomitant]
  15. CITALOPRAM [Concomitant]
  16. DONAREN [Concomitant]
     Indication: FIBROMYALGIA
     Route: 048
  17. DONAREN [Concomitant]
     Indication: SLEEP DISORDER
  18. SIMVASTATIN [Concomitant]
     Route: 048
  19. RIVOTRIL [Concomitant]
  20. TRAMAL [Concomitant]
  21. PARACETAMOL [Concomitant]
  22. PREDNISONE [Concomitant]
     Route: 065
  23. METHOTREXATE [Concomitant]
     Route: 065
  24. BROMOPRIDE [Concomitant]
  25. CELEBREX [Concomitant]
  26. DONAREN [Concomitant]
     Indication: FIBROMYALGIA
     Route: 065

REACTIONS (16)
  - Abdominal pain upper [Recovered/Resolved]
  - Chest pain [Recovered/Resolved]
  - Swelling [Recovered/Resolved]
  - Therapeutic response decreased [Unknown]
  - Hypersensitivity [Unknown]
  - Pruritus [Unknown]
  - Gastritis [Unknown]
  - Malaise [Not Recovered/Not Resolved]
  - Throat irritation [Not Recovered/Not Resolved]
  - Hyperaesthesia [Unknown]
  - Headache [Not Recovered/Not Resolved]
  - Pain [Not Recovered/Not Resolved]
  - Inflammation [Not Recovered/Not Resolved]
  - Nasal dryness [Not Recovered/Not Resolved]
  - Hypersensitivity [Not Recovered/Not Resolved]
  - Urticaria [Not Recovered/Not Resolved]
